FAERS Safety Report 4984803-0 (Version None)
Quarter: 2006Q2

REPORT INFORMATION
  Report Type: 
  Country: None (occurrence: None)
  Receive Date: 20060427
  Receipt Date: 20050914
  Transmission Date: 20061013
  Serious: Yes (Hospitalization)
  Sender: FDA-Public Use
  Company Number: US-MERCK-0509USA02224

PATIENT
  Age: 62 Year
  Sex: Female
  Weight: 123 kg

DRUGS (8)
  1. VIOXX [Suspect]
     Indication: ARTHRITIS
     Route: 048
     Dates: start: 20020101, end: 20030910
  2. HUMULIN 70/30 [Concomitant]
     Indication: DIABETES MELLITUS
     Route: 065
  3. HUMULIN 70/30 [Concomitant]
     Indication: DIABETES MELLITUS
     Route: 065
  4. METOCLOPRAMIDE [Concomitant]
     Indication: STOMACH DISCOMFORT
     Route: 065
  5. LEVOXYL [Concomitant]
     Indication: THYROID DISORDER
     Route: 065
  6. ATENOLOL [Concomitant]
     Indication: BLOOD PRESSURE
     Route: 065
  7. VASOTEC [Concomitant]
     Indication: BLOOD PRESSURE
     Route: 065
  8. LORATADINE [Concomitant]
     Route: 065

REACTIONS (7)
  - CARDIAC FAILURE CONGESTIVE [None]
  - DEPRESSION [None]
  - INSOMNIA [None]
  - OEDEMA PERIPHERAL [None]
  - PANIC ATTACK [None]
  - POST-TRAUMATIC STRESS DISORDER [None]
  - SWELLING [None]
